FAERS Safety Report 16571556 (Version 11)
Quarter: 2021Q3

REPORT INFORMATION
  Report Type: Report from Study
  Country: US (occurrence: US)
  Receive Date: 20190715
  Receipt Date: 20210713
  Transmission Date: 20211014
  Serious: Yes (Other)
  Sender: FDA-Public Use
  Company Number: US-ASTELLAS-2018US047737

PATIENT
  Sex: Male

DRUGS (2)
  1. ENZALUTAMIDE [Suspect]
     Active Substance: ENZALUTAMIDE
     Route: 048
  2. ENZALUTAMIDE [Suspect]
     Active Substance: ENZALUTAMIDE
     Indication: PROSTATIC SPECIFIC ANTIGEN INCREASED
     Route: 048
     Dates: start: 20181018

REACTIONS (24)
  - Insomnia [Not Recovered/Not Resolved]
  - Fatigue [Unknown]
  - Gout [Unknown]
  - Nausea [Unknown]
  - Illness [Unknown]
  - Balance disorder [Unknown]
  - Abdominal discomfort [Unknown]
  - Product use in unapproved indication [Unknown]
  - Asthenia [Not Recovered/Not Resolved]
  - Decreased appetite [Unknown]
  - Skin ulcer [Unknown]
  - Somnolence [Unknown]
  - Dyspnoea [Unknown]
  - Hand fracture [Unknown]
  - Inappropriate schedule of product administration [Unknown]
  - Product dose omission in error [Unknown]
  - Arthropod bite [Unknown]
  - Pruritus [Unknown]
  - Condition aggravated [Unknown]
  - Intellectual disability [Not Recovered/Not Resolved]
  - Feeling abnormal [Not Recovered/Not Resolved]
  - Nasopharyngitis [Unknown]
  - Vomiting [Unknown]
  - Weight decreased [Unknown]
